FAERS Safety Report 21109754 (Version 2)
Quarter: 2022Q4

REPORT INFORMATION
  Report Type: Report from Study
  Country: BR (occurrence: BR)
  Receive Date: 20220721
  Receipt Date: 20221119
  Transmission Date: 20230113
  Serious: Yes (Other)
  Sender: FDA-Public Use
  Company Number: BR-NOVARTISPH-NVSC2022BR161736

PATIENT
  Sex: Male

DRUGS (2)
  1. COSENTYX [Suspect]
     Active Substance: SECUKINUMAB
     Indication: Psoriatic arthropathy
     Dosage: 300 MG
     Route: 065
  2. COSENTYX [Suspect]
     Active Substance: SECUKINUMAB
     Dosage: UNK
     Route: 065
     Dates: start: 2020

REACTIONS (8)
  - Renal disorder [Unknown]
  - Psoriasis [Unknown]
  - Skin exfoliation [Unknown]
  - Deformity [Unknown]
  - Feeling abnormal [Unknown]
  - Pruritus [Unknown]
  - Skin laceration [Unknown]
  - Illness [Unknown]
